FAERS Safety Report 10929120 (Version 2)
Quarter: 2015Q2

REPORT INFORMATION
  Report Type: Spontaneous
  Country: US (occurrence: US)
  Receive Date: 20150319
  Receipt Date: 20150524
  Transmission Date: 20150821
  Serious: No
  Sender: FDA-Public Use
  Company Number: US-JNJFOC-20140815556

PATIENT
  Age: 10 Year
  Sex: Male

DRUGS (1)
  1. WATSON METHYLPHENIDATE HYDROCHLORIDE [Suspect]
     Active Substance: METHYLPHENIDATE HYDROCHLORIDE
     Indication: PRODUCT USED FOR UNKNOWN INDICATION
     Route: 048

REACTIONS (6)
  - Mood swings [Not Recovered/Not Resolved]
  - Anger [Not Recovered/Not Resolved]
  - Aggression [Not Recovered/Not Resolved]
  - Anxiety [Not Recovered/Not Resolved]
  - Drug effect decreased [Unknown]
  - Drug ineffective [Unknown]

NARRATIVE: CASE EVENT DATE: 2013
